FAERS Safety Report 18964250 (Version 1)
Quarter: 2021Q1

REPORT INFORMATION
  Report Type: Spontaneous
  Country: US (occurrence: US)
  Receive Date: 20210303
  Receipt Date: 20210303
  Transmission Date: 20210420
  Serious: No
  Sender: FDA-Public Use
  Company Number: US-AMNEAL PHARMACEUTICALS-2020-AMRX-02556

PATIENT
  Sex: Female

DRUGS (1)
  1. RYTARY [Suspect]
     Active Substance: CARBIDOPA\LEVODOPA
     Indication: PARKINSON^S DISEASE
     Dosage: 14 CAPSULES, DAILY (4 CAPS 6AM, 3 CAPS 10AM, 4 CAPS 2PM, 3 CAPS 6PM)
     Route: 048

REACTIONS (1)
  - Dysarthria [Unknown]
